FAERS Safety Report 21738946 (Version 1)
Quarter: 2022Q4

REPORT INFORMATION
  Report Type: Spontaneous
  Country: US (occurrence: US)
  Receive Date: 20221216
  Receipt Date: 20221216
  Transmission Date: 20230112
  Serious: No
  Sender: FDA-Public Use
  Company Number: US-SA-SAC20221214001563

PATIENT
  Age: 64 Year
  Sex: Female
  Weight: 63.497 kg

DRUGS (8)
  1. NEXVIAZYME [Suspect]
     Active Substance: AVALGLUCOSIDASE ALFA-NGPT
     Indication: Glycogen storage disease type II
     Dosage: 1300 MG, QOW
     Dates: start: 20221122
  2. HEPARIN [Concomitant]
     Active Substance: HEPARIN SODIUM
  3. EPINEPHRINE [Concomitant]
     Active Substance: EPINEPHRINE
  4. STERILE WATER [Concomitant]
     Active Substance: WATER
  5. ACETAMINOPHEN [Concomitant]
     Active Substance: ACETAMINOPHEN
  6. ADVIL [Concomitant]
     Active Substance: IBUPROFEN
  7. LORATADINE [Concomitant]
     Active Substance: LORATADINE
  8. METHYLPREDNISOLONE [Concomitant]
     Active Substance: METHYLPREDNISOLONE

REACTIONS (2)
  - Fall [Unknown]
  - Wrist fracture [Unknown]
